FAERS Safety Report 6661901-7 (Version None)
Quarter: 2010Q1

REPORT INFORMATION
  Report Type: 
  Country: None (occurrence: None)
  Receive Date: 20100331
  Receipt Date: 20090925
  Transmission Date: 20100710
  Serious: Yes (Other)
  Sender: FDA-Public Use
  Company Number: US-BRISTOL-MYERS SQUIBB COMPANY-14790174

PATIENT
  Age: 50 Year
  Sex: Female

DRUGS (6)
  1. ERBITUX [Suspect]
     Indication: COLORECTAL CANCER METASTATIC
     Route: 042
     Dates: start: 20090815
  2. BENADRYL [Concomitant]
     Indication: PREMEDICATION
     Route: 042
  3. CAMPTOSAR [Concomitant]
  4. VITAMIN C [Concomitant]
     Route: 042
  5. DECADRON [Concomitant]
     Route: 042
  6. ATROPINE [Concomitant]

REACTIONS (1)
  - INFUSION RELATED REACTION [None]
